FAERS Safety Report 14786163 (Version 1)
Quarter: 2018Q2

REPORT INFORMATION
  Report Type: Spontaneous
  Country: PL (occurrence: PL)
  Receive Date: 20180420
  Receipt Date: 20180420
  Transmission Date: 20180711
  Serious: Yes (Other)
  Sender: FDA-Public Use
  Company Number: PHHY2017PL164873

PATIENT
  Age: 18 Month
  Sex: Male

DRUGS (3)
  1. ETOPOSIDE. [Suspect]
     Active Substance: ETOPOSIDE
     Indication: CHOROID PLEXUS CARCINOMA
     Dosage: UNK, CYCLIC (18 CYCLES OF CPT-SIOP PROTOCOL-BASED CHEMOTHERAPY, DOSE REDUCTION AFTER 10 CYCLES)
     Route: 065
  2. VINCRISTINE [Suspect]
     Active Substance: VINCRISTINE
     Indication: CHOROID PLEXUS CARCINOMA
     Dosage: UNK, CYCLIC (18 CYCLES OF CPT-SIOP PROTOCOL-BASED CHEMOTHERAPY, DOSE REDUCTION AFTER 10 CYCLES)
     Route: 065
  3. CARBOPLATIN. [Suspect]
     Active Substance: CARBOPLATIN
     Indication: CHOROID PLEXUS CARCINOMA
     Dosage: UNK, CYCLIC (18 CYCLES OF CPT-SIOP PROTOCOL-BASED CHEMOTHERAPY, DOSE REDUCTION AFTER 10 CYCLES)
     Route: 065

REACTIONS (3)
  - Deafness neurosensory [Unknown]
  - Product use in unapproved indication [Unknown]
  - Bone marrow failure [Recovered/Resolved]
